FAERS Safety Report 23090584 (Version 1)
Quarter: 2023Q4

REPORT INFORMATION
  Report Type: Other
  Country: None (occurrence: US)
  Receive Date: 20231020
  Receipt Date: 20231020
  Transmission Date: 20240109
  Serious: No
  Sender: FDA-Public Use
  Company Number: US-Breckenridge Pharmaceutical, Inc.-2147284

PATIENT
  Age: 45 Year
  Sex: Male

DRUGS (1)
  1. APIXABAN [Suspect]
     Active Substance: APIXABAN
     Indication: Thrombosis prophylaxis
     Route: 048

REACTIONS (8)
  - Cutaneous vasculitis [Unknown]
  - Proteinuria [Unknown]
  - Blister [Unknown]
  - Atrioventricular dissociation [Unknown]
  - Bradycardia [Unknown]
  - Oedema peripheral [Unknown]
  - Blood creatinine increased [Unknown]
  - Renal failure [Unknown]
